FAERS Safety Report 4970796-9 (Version None)
Quarter: 2006Q2

REPORT INFORMATION
  Report Type: 
  Country: None (occurrence: None)
  Receive Date: 20060406
  Receipt Date: 20060317
  Transmission Date: 20061013
  Serious: Yes (Hospitalization)
  Sender: FDA-Public Use
  Company Number: US_0508120893

PATIENT
  Age: 52 Year
  Sex: Male
  Weight: 104.3 kg

DRUGS (15)
  1. ZYPREXA [Suspect]
     Indication: BIPOLAR DISORDER
     Dosage: SEE IMAGE
     Route: 048
     Dates: start: 19990801, end: 19990927
  2. ZYPREXA [Suspect]
     Indication: BIPOLAR DISORDER
     Dosage: SEE IMAGE
     Route: 048
     Dates: start: 19990927, end: 20010406
  3. ZYPREXA [Suspect]
     Indication: BIPOLAR DISORDER
     Dosage: SEE IMAGE
     Route: 048
     Dates: start: 20010406, end: 20010503
  4. ZYPREXA [Suspect]
     Indication: BIPOLAR DISORDER
     Dosage: SEE IMAGE
     Route: 048
     Dates: start: 20010621, end: 20040601
  5. PROZAC [Suspect]
     Indication: ANXIETY
     Dosage: SEE IMAGE
     Route: 048
     Dates: start: 19960101, end: 19990831
  6. PROZAC [Suspect]
     Indication: ANXIETY
     Dosage: SEE IMAGE
     Route: 048
     Dates: start: 20010503, end: 20010920
  7. PROZAC [Suspect]
     Indication: ANXIETY
     Dosage: SEE IMAGE
     Route: 048
     Dates: start: 19980101, end: 20021113
  8. PROZAC [Suspect]
     Indication: ANXIETY
     Dosage: SEE IMAGE
     Route: 048
     Dates: start: 20031020, end: 20040927
  9. BUPROPION HCL [Concomitant]
  10. DEPAKOTE [Concomitant]
  11. LIPITOR [Concomitant]
  12. KLONOPIN [Concomitant]
  13. TENORMIN [Concomitant]
  14. LOPID [Concomitant]
  15. HYDROCHLOROTHIAZIDE [Concomitant]

REACTIONS (17)
  - BLOOD CHOLESTEROL INCREASED [None]
  - DIABETES MELLITUS NON-INSULIN-DEPENDENT [None]
  - DIABETIC GASTROPARESIS [None]
  - DIABETIC NEUROPATHY [None]
  - DIARRHOEA [None]
  - EXTRAPYRAMIDAL DISORDER [None]
  - HYPONATRAEMIA [None]
  - INTENTION TREMOR [None]
  - MANIA [None]
  - MUSCLE SPASMS [None]
  - MYOSITIS [None]
  - NAUSEA [None]
  - PNEUMONIA PRIMARY ATYPICAL [None]
  - TACHYCARDIA [None]
  - TREATMENT NONCOMPLIANCE [None]
  - TRIGEMINAL NERVE DISORDER [None]
  - VOMITING [None]
